FAERS Safety Report 13473010 (Version 4)
Quarter: 2017Q2

REPORT INFORMATION
  Report Type: Spontaneous
  Country: BR (occurrence: BR)
  Receive Date: 20170424
  Receipt Date: 20170508
  Transmission Date: 20170830
  Serious: Yes (Other)
  Sender: FDA-Public Use
  Company Number: BR-009507513-1405BRA003156

PATIENT
  Sex: Female
  Weight: 90 kg

DRUGS (4)
  1. HIDANTAL [Interacting]
     Active Substance: PHENYTOIN SODIUM
     Dosage: 1 TABLET ORALLY IN THE MORNING, 2 TABLETS AT NIGHT
     Route: 048
  2. MERCILON [Interacting]
     Active Substance: DESOGESTREL\ETHINYL ESTRADIOL
     Indication: MENSTRUAL CYCLE MANAGEMENT
     Dosage: 1 TABLET ORALLY PER DAY WITH 7 DAYS OF PAUSE BETWEEN BLISTER PACK
     Route: 048
     Dates: start: 2014, end: 2015
  3. MERCILON [Interacting]
     Active Substance: DESOGESTREL\ETHINYL ESTRADIOL
     Dosage: 1 DF, UNK
     Route: 048
  4. MERCILON [Suspect]
     Active Substance: DESOGESTREL\ETHINYL ESTRADIOL
     Indication: CONTRACEPTION
     Dosage: 1 TABLET ORALLY PER DAY AT 9 PM, WITH 7 DAYS OF PAUSE BETWEEN BLISTER PACK
     Route: 048
     Dates: start: 201701

REACTIONS (8)
  - Menstruation irregular [Unknown]
  - Drug interaction [Unknown]
  - Seizure [Not Recovered/Not Resolved]
  - Withdrawal bleed [Unknown]
  - Product use in unapproved indication [Unknown]
  - Menstrual disorder [Not Recovered/Not Resolved]
  - Emotional disorder [Unknown]
  - Inappropriate schedule of drug administration [Unknown]

NARRATIVE: CASE EVENT DATE: 2016
